FAERS Safety Report 15703520 (Version 2)
Quarter: 2018Q4

REPORT INFORMATION
  Report Type: Spontaneous
  Country: US (occurrence: US)
  Receive Date: 20181210
  Receipt Date: 20181213
  Transmission Date: 20190205
  Serious: No
  Sender: FDA-Public Use
  Company Number: US-PFIZER INC-2018501485

PATIENT
  Age: 65 Year
  Sex: Female

DRUGS (1)
  1. XELJANZ XR [Suspect]
     Active Substance: TOFACITINIB CITRATE
     Dosage: 11 MG, D.O.B (DOB)

REACTIONS (4)
  - Gingivitis [Unknown]
  - Gingival injury [Unknown]
  - Gingival pain [Unknown]
  - Gingival swelling [Unknown]
